FAERS Safety Report 5295316-3 (Version None)
Quarter: 2007Q2

REPORT INFORMATION
  Report Type: 
  Country: None (occurrence: None)
  Receive Date: 20070405
  Receipt Date: 20070327
  Transmission Date: 20071010
  Serious: Yes (Other)
  Sender: FDA-Public Use
  Company Number: 234675

PATIENT
  Age: 35 Year
  Sex: Female
  Weight: 113.6 kg

DRUGS (7)
  1. OMALIZUMAB(OMALIZUMAB) POWDER AND SOLVENT FOR FOR INJECTION, 150MG [Suspect]
     Indication: ASTHMA
     Dosage: 300 MG, Q2W, SUBCUTANEOUS
     Route: 058
     Dates: start: 20060505, end: 20061219
  2. FLONASE [Suspect]
     Indication: ASTHMA
  3. ALBUTEROL (ALBUTEROL/ALBUTEROL SULFATE) [Concomitant]
  4. SUDAFED 12 HOUR [Concomitant]
  5. TYLENOL (CAPLET) [Concomitant]
  6. CLARINEX [Concomitant]
  7. ADVAIR DISKUS 100/50 [Concomitant]

REACTIONS (6)
  - ABORTION SPONTANEOUS [None]
  - CAESAREAN SECTION [None]
  - CONGENITAL ANOMALY [None]
  - DRUG EXPOSURE BEFORE PREGNANCY [None]
  - DRUG EXPOSURE DURING PREGNANCY [None]
  - PREGNANCY [None]
